FAERS Safety Report 9192254 (Version 4)
Quarter: 2017Q4

REPORT INFORMATION
  Report Type: Report from Study
  Country: US (occurrence: US)
  Receive Date: 20130327
  Receipt Date: 20171117
  Transmission Date: 20180321
  Serious: Yes (Hospitalization)
  Sender: FDA-Public Use
  Company Number: US-JNJFOC-20130212016

PATIENT
  Age: 47 Year
  Sex: Female
  Weight: 65.77 kg

DRUGS (10)
  1. CALCIUM [Concomitant]
     Active Substance: CALCIUM
     Route: 065
  2. BENADRYL [Concomitant]
     Active Substance: DIPHENHYDRAMINE HYDROCHLORIDE
     Indication: PREMEDICATION
     Route: 042
     Dates: start: 20121104
  3. VITAMIN B12 [Concomitant]
     Active Substance: CYANOCOBALAMIN
     Route: 065
  4. REMICADE [Suspect]
     Active Substance: INFLIXIMAB
     Indication: CROHN^S DISEASE
     Route: 042
     Dates: start: 20121104, end: 201211
  5. IRON [Concomitant]
     Active Substance: IRON
     Route: 065
  6. VITAMIN A [Concomitant]
     Active Substance: VITAMIN A
     Route: 065
  7. SOLU-MEDROL [Concomitant]
     Active Substance: METHYLPREDNISOLONE SODIUM SUCCINATE
     Indication: PREMEDICATION
     Route: 042
     Dates: start: 20121104
  8. APRISO [Concomitant]
     Active Substance: MESALAMINE
     Route: 065
  9. VITAMIN D [Concomitant]
     Active Substance: CHOLECALCIFEROL
     Route: 065
  10. VITAMIN B [Concomitant]
     Active Substance: VITAMIN B
     Route: 065

REACTIONS (8)
  - Drug specific antibody [Unknown]
  - Heart rate increased [Recovered/Resolved]
  - Myalgia [Recovered/Resolved]
  - Palpitations [Recovered/Resolved]
  - Drug ineffective [Unknown]
  - Pain in extremity [Recovering/Resolving]
  - Pyrexia [Recovered/Resolved]
  - Malaise [Recovering/Resolving]

NARRATIVE: CASE EVENT DATE: 20121105
